FAERS Safety Report 9295801 (Version 1)
Quarter: 2013Q2

REPORT INFORMATION
  Report Type: Spontaneous
  Country: KR (occurrence: None)
  Receive Date: 20130514
  Receipt Date: 20130514
  Transmission Date: 20140414
  Serious: Yes (Other)
  Sender: FDA-Public Use
  Company Number: SYM-2013-03773

PATIENT
  Sex: 0

DRUGS (3)
  1. FLUOROURACIL (FLUOROURACIL) (FLUOROURACIL) [Suspect]
     Indication: RECTAL CANCER
  2. FOLINIC ACID (FOLINIC ACID)(FOLINIC ACID) [Suspect]
     Indication: RECTAL CANCER
  3. THERAPEUTIC RADIOPHARMACEUTICALS (THERAPEUTIC RADIOPHARMACEUTICALS) [Suspect]
     Indication: RECTAL CANCER
     Dosage: 7.2 GY

REACTIONS (2)
  - Pelvic abscess [None]
  - Toxicity to various agents [None]
